FAERS Safety Report 19108160 (Version 1)
Quarter: 2021Q2

REPORT INFORMATION
  Report Type: Spontaneous
  Country: US (occurrence: US)
  Receive Date: 20210408
  Receipt Date: 20210408
  Transmission Date: 20210717
  Serious: No
  Sender: FDA-Public Use
  Company Number: None

PATIENT
  Age: 62 Year
  Sex: Female
  Weight: 75.1 kg

DRUGS (13)
  1. TACROLIMUS 1 MG [Concomitant]
     Active Substance: TACROLIMUS
  2. CARVEDILOL 12.5 MG [Concomitant]
     Active Substance: CARVEDILOL
  3. LOSARTAN 25 MG [Concomitant]
     Active Substance: LOSARTAN
  4. REPAGLINIDE 0.5 MG [Concomitant]
  5. MYCOPHENOLATE 250 MG [Concomitant]
     Active Substance: MYCOPHENOLIC ACID
  6. PREDNISONE 5 MG [Concomitant]
     Active Substance: PREDNISONE
  7. ATORVASTATIN 10 MG [Concomitant]
     Active Substance: ATORVASTATIN
  8. SITAGLIPTIN 25 MG [Concomitant]
  9. CHOLECALCIFEROL 50 MCG CHEWABLE TABLET [Concomitant]
  10. AMLODIPINE 10 MG [Concomitant]
     Active Substance: AMLODIPINE BESYLATE
  11. ATOVAQUONE 750 MG/5 ML [Concomitant]
  12. CASIRIVIMAB/IMDEVIMAB [Suspect]
     Active Substance: CASIRIVIMAB\IMDEVIMAB
     Indication: COVID-19
     Dosage: ?          OTHER FREQUENCY:ONCE;?
     Route: 042
     Dates: start: 20210407, end: 20210407
  13. ASPIRIN 81 MG EC [Concomitant]
     Active Substance: ASPIRIN

REACTIONS (3)
  - Skin burning sensation [None]
  - Dyspepsia [None]
  - Tremor [None]

NARRATIVE: CASE EVENT DATE: 20210407
